FAERS Safety Report 5668297-8 (Version None)
Quarter: 2008Q1

REPORT INFORMATION
  Report Type: 
  Country: None (occurrence: None)
  Receive Date: 20080312
  Receipt Date: 20080303
  Transmission Date: 20080703
  Serious: Yes (Other)
  Sender: FDA-Public Use
  Company Number: 024653

PATIENT
  Age: 17 Year
  Sex: Female

DRUGS (2)
  1. CLARAVIS [Suspect]
     Indication: ACNE
     Dosage: ORAL; 40 MG, QD, ORAL
     Route: 048
     Dates: end: 20080207
  2. CLARAVIS [Suspect]
     Indication: ACNE
     Dosage: ORAL; 40 MG, QD, ORAL
     Route: 048
     Dates: start: 20070730

REACTIONS (2)
  - CARTILAGE INJURY [None]
  - SPORTS INJURY [None]
